FAERS Safety Report 7319779-4 (Version None)
Quarter: 2011Q1

REPORT INFORMATION
  Report Type: 
  Country: None (occurrence: None)
  Receive Date: 20110223
  Receipt Date: 20110223
  Transmission Date: 20110831
  Serious: Yes (Other)
  Sender: FDA-Public Use
  Company Number: None

PATIENT
  Sex: Female

DRUGS (3)
  1. VYTORIN [Concomitant]
  2. AMLODIPINE [Concomitant]
  3. HYZAAR [Suspect]
     Indication: HYPERTENSION
     Dosage: PO 100/25
     Route: 048
     Dates: start: 20100101

REACTIONS (3)
  - COUGH [None]
  - PRODUCT SUBSTITUTION ISSUE [None]
  - OROPHARYNGEAL PAIN [None]
